FAERS Safety Report 14939064 (Version 2)
Quarter: 2018Q2

REPORT INFORMATION
  Report Type: Spontaneous
  Country: US (occurrence: US)
  Receive Date: 20180525
  Receipt Date: 20180619
  Transmission Date: 20180711
  Serious: No
  Sender: FDA-Public Use
  Company Number: US-PFIZER INC-2018213588

PATIENT
  Age: 59 Year
  Sex: Female

DRUGS (2)
  1. IBRANCE [Suspect]
     Active Substance: PALBOCICLIB
     Indication: BREAST CANCER FEMALE
     Dosage: 100 MG, 1X/DAY
     Route: 048
     Dates: start: 20180325
  2. IBRANCE [Suspect]
     Active Substance: PALBOCICLIB
     Dosage: 100 MG, CYCLIC (100 MG 1 CAP DAILY FOR 3 WKS; 1 WEEK OFF THEN RESUME)
     Route: 048
     Dates: start: 20180417

REACTIONS (12)
  - Alopecia [Unknown]
  - Back pain [Unknown]
  - Muscle spasms [Unknown]
  - Pruritus [Unknown]
  - Increased tendency to bruise [Unknown]
  - Chills [Recovered/Resolved]
  - Rash [Recovered/Resolved]
  - Hot flush [Recovering/Resolving]
  - Asthenia [Recovering/Resolving]
  - White blood cell count decreased [Recovering/Resolving]
  - Feeling abnormal [Unknown]
  - Abdominal discomfort [Recovered/Resolved]

NARRATIVE: CASE EVENT DATE: 20180405
